FAERS Safety Report 5590590-8 (Version None)
Quarter: 2008Q1

REPORT INFORMATION
  Report Type: 
  Country: None (occurrence: None)
  Receive Date: 20080114
  Receipt Date: 20080104
  Transmission Date: 20080703
  Serious: Yes (Life-Threatening, Hospitalization, Other)
  Sender: FDA-Public Use
  Company Number: FR-ABBOTT-07P-056-0431285-00

PATIENT
  Sex: Male

DRUGS (8)
  1. LIPANTHYL [Suspect]
     Indication: DRUG USE FOR UNKNOWN INDICATION
     Route: 048
  2. COZKENZEN [Suspect]
     Indication: HYPERTENSION
     Route: 048
  3. AMIODARONE HCL [Suspect]
     Indication: TACHYCARDIA
     Route: 048
     Dates: start: 20060701
  4. FUROSEMIDE [Suspect]
     Indication: DRUG USE FOR UNKNOWN INDICATION
     Route: 048
  5. FUROSEMIDE [Suspect]
  6. BISOPROLOL [Suspect]
     Indication: DRUG USE FOR UNKNOWN INDICATION
     Route: 048
  7. CLOPIDOGREL [Concomitant]
     Indication: DRUG USE FOR UNKNOWN INDICATION
     Route: 048
  8. DIPYRIDAMOLE [Concomitant]
     Indication: DRUG USE FOR UNKNOWN INDICATION
     Route: 048

REACTIONS (15)
  - ASTHENIA [None]
  - BRADYCARDIA [None]
  - CIRCULATORY COLLAPSE [None]
  - COAGULOPATHY [None]
  - CYTOLYTIC HEPATITIS [None]
  - DYSPHAGIA [None]
  - GASTRIC ULCER [None]
  - HAEMATURIA [None]
  - HYPERKALAEMIA [None]
  - INFLAMMATION [None]
  - NOSOPHOBIA [None]
  - PULSE ABSENT [None]
  - RENAL FAILURE [None]
  - RESPIRATORY ARREST [None]
  - TACHYCARDIA [None]
